FAERS Safety Report 17082667 (Version 2)
Quarter: 2019Q4

REPORT INFORMATION
  Report Type: Report from Study
  Country: US (occurrence: US)
  Receive Date: 20191127
  Receipt Date: 20191227
  Transmission Date: 20200122
  Serious: Yes (Death, Other)
  Sender: FDA-Public Use
  Company Number: US-SAOL THERAPEUTICS-0700185889

PATIENT
  Sex: Female

DRUGS (2)
  1. LIORESAL [Suspect]
     Active Substance: BACLOFEN
     Dosage: 647.9 ?G, \DAY FLEX
     Route: 037
     Dates: start: 20120327
  2. LIORESAL [Suspect]
     Active Substance: BACLOFEN
     Indication: MUSCLE SPASTICITY
     Dosage: 609.4 ?G, \DAY SC MODE
     Route: 037
     Dates: start: 20120210, end: 20120327

REACTIONS (12)
  - Generalised oedema [Fatal]
  - Wound complication [Fatal]
  - Cardiac arrest [Fatal]
  - Tachycardia [Fatal]
  - Capillary leak syndrome [Fatal]
  - Post procedural haemorrhage [Fatal]
  - Haemodynamic instability [Fatal]
  - Arterial haemorrhage [Fatal]
  - Procedural hypotension [Fatal]
  - Sepsis [Fatal]
  - Implant site infection [Fatal]
  - Post procedural infection [Fatal]
